FAERS Safety Report 12778750 (Version 1)
Quarter: 2016Q3

REPORT INFORMATION
  Report Type: Spontaneous
  Country: JP (occurrence: JP)
  Receive Date: 20160926
  Receipt Date: 20160926
  Transmission Date: 20161109
  Serious: Yes (Death, Other)
  Sender: FDA-Public Use
  Company Number: JP-BAUSCH-BL-2016-023150

PATIENT
  Age: 72 Year
  Sex: Male

DRUGS (6)
  1. CARBOPLATIN. [Suspect]
     Active Substance: CARBOPLATIN
     Dosage: (CBDCA AUC OF 3.5)?2ND CYCLE OF CHEMOTHERAPY DOSE WAS REDUCED
     Route: 065
  2. PACLITAXEL. [Suspect]
     Active Substance: PACLITAXEL
     Dosage: 2ND CYCLE OF CHEMOTHERAPY DOSE WAS REDUCED
     Route: 065
  3. HYDROCORTISONE. [Suspect]
     Active Substance: HYDROCORTISONE
     Indication: HYPOPITUITARISM
     Route: 065
  4. DEXAMETHASONE. [Suspect]
     Active Substance: DEXAMETHASONE
     Indication: PROPHYLAXIS
     Route: 065
  5. CARBOPLATIN. [Suspect]
     Active Substance: CARBOPLATIN
     Indication: CHEMOTHERAPY
     Dosage: CBDCA: AREA UNDER THE CURVE OF 5 ON DAY 1
     Route: 065
  6. PACLITAXEL. [Suspect]
     Active Substance: PACLITAXEL
     Indication: CHEMOTHERAPY
     Dosage: ON DAY 1
     Route: 065

REACTIONS (6)
  - Febrile neutropenia [Recovering/Resolving]
  - Systemic candida [Fatal]
  - Pancytopenia [Unknown]
  - Abdominal distension [Unknown]
  - Septic shock [Unknown]
  - Lung squamous cell carcinoma stage III [Unknown]
